FAERS Safety Report 5692566-9 (Version None)
Quarter: 2008Q2

REPORT INFORMATION
  Report Type: 
  Country: None (occurrence: None)
  Receive Date: 20080402
  Receipt Date: 20080318
  Transmission Date: 20081010
  Serious: Yes (Other)
  Sender: FDA-Public Use
  Company Number: DE-GENENTECH-257828

PATIENT
  Age: 62 Year
  Sex: Male

DRUGS (3)
  1. LUCENTIS [Suspect]
     Indication: MACULAR DEGENERATION
     Dosage: 6 DF, SINGLE
     Route: 031
     Dates: start: 20070301
  2. LUCENTIS [Suspect]
     Dosage: 1 DF, SINGLE
     Route: 031
     Dates: start: 20080221
  3. FRAXIPARIN [Suspect]
     Indication: INJURY
     Dosage: UNK, UNKNOWN
     Route: 065

REACTIONS (2)
  - DRUG INTERACTION [None]
  - VISUAL ACUITY REDUCED [None]
